FAERS Safety Report 12078783 (Version 1)
Quarter: 2016Q1

REPORT INFORMATION
  Report Type: Spontaneous
  Country: US (occurrence: US)
  Receive Date: 20160216
  Receipt Date: 20160216
  Transmission Date: 20160526
  Serious: Yes (Other)
  Sender: FDA-Public Use
  Company Number: US-ACCORD-037955

PATIENT
  Age: 24 Year
  Sex: Female

DRUGS (4)
  1. PREDNISONE/PREDNISONE ACETATE [Suspect]
     Active Substance: PREDNISONE
     Indication: AUTOIMMUNE HEPATITIS
  2. SIROLIMUS. [Suspect]
     Active Substance: SIROLIMUS
     Indication: AUTOIMMUNE HEPATITIS
  3. TACROLIMUS. [Suspect]
     Active Substance: TACROLIMUS
     Indication: AUTOIMMUNE HEPATITIS
     Dosage: INITIAL DOSE WAS 3 MG (AM), 4 MG (PM).?DOSE WAS INCREASED (7 MG BID, 10 MG BID).
  4. MYCOPHENOLIC ACID. [Suspect]
     Active Substance: MYCOPHENOLIC ACID
     Indication: AUTOIMMUNE HEPATITIS
     Dosage: INITIAL DOSE: 1000 MG BID, THEN 1500 MG BID, THEN 500 MG BID, TNEN 1000 MG BID

REACTIONS (5)
  - Fibrosis [Unknown]
  - Off label use [Unknown]
  - Transaminases increased [Recovered/Resolved]
  - Osteoporosis [Unknown]
  - Renal failure [Recovering/Resolving]
